FAERS Safety Report 9034990 (Version 2)
Quarter: 2013Q1

REPORT INFORMATION
  Report Type: Spontaneous
  Country: FR (occurrence: None)
  Receive Date: 20130115
  Receipt Date: 20130123
  Transmission Date: 20140127
  Serious: Yes (Other)
  Sender: FDA-Public Use
  Company Number: 2012-6171

PATIENT
  Age: 61 Year
  Sex: Female

DRUGS (3)
  1. DYSPORT [Suspect]
     Indication: TORTICOLLIS
     Dosage: 500 UNITS (500 UNITS, CYCLE(S)), INTRAMUSCULAR DISCONTINUED
     Route: 030
     Dates: start: 20110909
  2. PROZAC (FLUOXETINE HYDROCHLORIDE) [Concomitant]
  3. METHOTREXATE (METHOTREXATE) [Concomitant]

REACTIONS (6)
  - Botulism [None]
  - Dysphagia [None]
  - Dysphagia [None]
  - Mydriasis [None]
  - Dysphonia [None]
  - Asthenia [None]
